FAERS Safety Report 5732619-X (Version None)
Quarter: 2008Q2

REPORT INFORMATION
  Report Type: 
  Country: None (occurrence: None)
  Receive Date: 20080507
  Receipt Date: 20080421
  Transmission Date: 20081010
  Serious: Yes (Other)
  Sender: FDA-Public Use
  Company Number: 002#2#2007-00398

PATIENT
  Sex: Male

DRUGS (2)
  1. TRILYTE-CHERRY FLAVORED [Suspect]
     Indication: COLONOSCOPY
     Dosage: 240ML, 10 IN 10 MIN, ORAL
     Route: 048
     Dates: start: 20071106, end: 20071106
  2. TRILYTE-CHERRY FLAVORED [Suspect]
     Indication: ENDOSCOPY
     Dosage: 240ML, 10 IN 10 MIN, ORAL
     Route: 048
     Dates: start: 20071106, end: 20071106

REACTIONS (3)
  - ABDOMINAL PAIN [None]
  - CONSTIPATION [None]
  - NAUSEA [None]
